FAERS Safety Report 5636698-X (Version None)
Quarter: 2008Q1

REPORT INFORMATION
  Report Type: 
  Country: None (occurrence: None)
  Receive Date: 20080225
  Receipt Date: 20080219
  Transmission Date: 20080703
  Serious: Yes (Death, Life-Threatening, Hospitalization)
  Sender: FDA-Public Use
  Company Number: DE-ASTRAZENECA-2008PK00356

PATIENT
  Age: 25543 Day
  Sex: Female

DRUGS (11)
  1. NEXIUM [Suspect]
     Route: 048
     Dates: start: 20030208
  2. ALLOPURINOL [Suspect]
     Indication: HYPERURICAEMIA
     Route: 048
     Dates: start: 20030206
  3. THEOPHYLLINE [Suspect]
     Indication: DYSPNOEA
     Route: 048
     Dates: start: 20030208
  4. TOREM [Suspect]
     Indication: OEDEMA
     Route: 048
     Dates: start: 20030208
  5. DIGITOXIN INJ [Suspect]
     Indication: CARDIAC FAILURE
     Route: 048
     Dates: start: 20030208
  6. ASPIRIN [Suspect]
     Indication: CEREBROVASCULAR ACCIDENT
     Route: 048
     Dates: start: 20030228, end: 20030307
  7. HEPARIN [Suspect]
     Indication: THROMBOSIS PROPHYLAXIS
     Dosage: 5000 IE TO 7500 IE
     Route: 058
     Dates: start: 20030228
  8. CIPRO [Concomitant]
     Indication: PNEUMONIA
     Route: 048
     Dates: start: 20030208, end: 20030211
  9. BISOPROLOL FUMARATE [Concomitant]
     Indication: CARDIAC FAILURE
     Route: 048
     Dates: start: 20030208, end: 20030227
  10. PLAVIX [Concomitant]
     Indication: CEREBROVASCULAR ACCIDENT
     Route: 048
  11. FENISTIL [Concomitant]
     Indication: RASH
     Route: 048
     Dates: start: 20030307

REACTIONS (2)
  - STEVENS-JOHNSON SYNDROME [None]
  - TOXIC EPIDERMAL NECROLYSIS [None]
